FAERS Safety Report 6585849-1 (Version None)
Quarter: 2010Q1

REPORT INFORMATION
  Report Type: 
  Country: None (occurrence: None)
  Receive Date: 20100217
  Receipt Date: 20100204
  Transmission Date: 20100710
  Serious: Yes (Hospitalization)
  Sender: FDA-Public Use
  Company Number: PHHY2010NL06100

PATIENT
  Sex: Male

DRUGS (4)
  1. ZOMETA [Suspect]
     Dosage: 4 MG, UNK
     Route: 042
     Dates: start: 20091013
  2. ZOMETA [Suspect]
     Dosage: UNK
     Route: 042
     Dates: start: 20091109
  3. ZOMETA [Suspect]
     Dosage: UNK
     Route: 042
     Dates: start: 20091209
  4. ZOMETA [Suspect]
     Dosage: UNK
     Route: 042
     Dates: start: 20100105

REACTIONS (8)
  - BLOOD POTASSIUM DECREASED [None]
  - CYSTITIS [None]
  - DIARRHOEA [None]
  - DIZZINESS [None]
  - ESCHERICHIA INFECTION [None]
  - MALAISE [None]
  - PYREXIA [None]
  - VOMITING [None]
